FAERS Safety Report 6870190-X (Version None)
Quarter: 2010Q3

REPORT INFORMATION
  Report Type: 
  Country: None (occurrence: None)
  Receive Date: 20100723
  Receipt Date: 20100714
  Transmission Date: 20110219
  Serious: Yes (Hospitalization)
  Sender: FDA-Public Use
  Company Number: US-BIOGENIDEC-2010BI018457

PATIENT
  Age: 62 Year
  Sex: Female
  Weight: 106 kg

DRUGS (1)
  1. TYSABRI [Suspect]
     Indication: MULTIPLE SCLEROSIS
     Route: 042
     Dates: start: 20080520

REACTIONS (12)
  - BLOOD POTASSIUM DECREASED [None]
  - BLOOD SODIUM DECREASED [None]
  - DEPRESSED LEVEL OF CONSCIOUSNESS [None]
  - FALL [None]
  - LETHARGY [None]
  - MENTAL STATUS CHANGES [None]
  - MOBILITY DECREASED [None]
  - MUSCULAR WEAKNESS [None]
  - NAUSEA [None]
  - PNEUMONIA [None]
  - TRIGEMINAL NEURALGIA [None]
  - VOMITING [None]
